FAERS Safety Report 11325121 (Version 1)
Quarter: 2015Q3

REPORT INFORMATION
  Report Type: Spontaneous
  Country: US (occurrence: US)
  Receive Date: 20150730
  Receipt Date: 20150730
  Transmission Date: 20151125
  Serious: Yes (Other)
  Sender: FDA-Public Use
  Company Number: US-BAUSCH-BL-2015-017736

PATIENT
  Age: 45 Year
  Sex: Male

DRUGS (1)
  1. APRISO [Suspect]
     Active Substance: MESALAMINE
     Indication: PRODUCT USED FOR UNKNOWN INDICATION
     Dosage: TAKES FOUR A DAY FOR A 30 DAY SUPPLY
     Dates: start: 201406, end: 201409

REACTIONS (3)
  - Feeling abnormal [Unknown]
  - Stress [Unknown]
  - Haematochezia [Unknown]
